FAERS Safety Report 25090374 (Version 1)
Quarter: 2025Q1

REPORT INFORMATION
  Report Type: Spontaneous
  Country: US (occurrence: US)
  Receive Date: 20250318
  Receipt Date: 20250318
  Transmission Date: 20250409
  Serious: No
  Sender: DR REDDYS
  Company Number: None

PATIENT
  Age: 13 Year
  Sex: Female

DRUGS (5)
  1. FULVESTRANT [Suspect]
     Active Substance: FULVESTRANT
     Indication: Ovarian cancer stage III
     Route: 030
     Dates: start: 2023
  2. LETROZOLE [Suspect]
     Active Substance: LETROZOLE
     Indication: Ovarian cancer stage III
     Dates: start: 2023
  3. PALBOCICLIB [Suspect]
     Active Substance: PALBOCICLIB
     Indication: Ovarian cancer stage III
     Dosage: FOR 21 DAYS, FOLLOWED BY A 7-DAY REST PERIOD, WITH CYCLES REPEATED EVERY 28 DAYS
     Route: 048
  4. PALBOCICLIB [Suspect]
     Active Substance: PALBOCICLIB
     Dosage: REDUCED; FOR 21 DAYS, WITH A 7-DAY REST PERIOD
     Dates: start: 2023
  5. LEUPROLIDE [Concomitant]
     Active Substance: LEUPROLIDE
     Indication: Ovarian cancer stage III
     Route: 030

REACTIONS (4)
  - Alopecia [Recovered/Resolved]
  - Nausea [Recovered/Resolved]
  - Fatigue [Recovered/Resolved]
  - Product use in unapproved indication [Recovered/Resolved]
